FAERS Safety Report 21147251 (Version 1)
Quarter: 2022Q3

REPORT INFORMATION
  Report Type: Spontaneous
  Country: US (occurrence: None)
  Receive Date: 20220728
  Receipt Date: 20220728
  Transmission Date: 20221027
  Serious: Yes (Hospitalization)
  Sender: FDA-Public Use
  Company Number: None

PATIENT
  Age: 58 Year
  Sex: Female
  Weight: 54.9 kg

DRUGS (2)
  1. NIVOLUMAB [Suspect]
     Active Substance: NIVOLUMAB
     Indication: Non-small cell lung cancer
     Dosage: FREQUENCY : EVERY OTHER WEEK;?
     Route: 042
  2. IPILIMUMAB [Suspect]
     Active Substance: IPILIMUMAB
     Indication: Non-small cell lung cancer
     Dosage: OTHER FREQUENCY : Q6 WEEKS;?
     Route: 042

REACTIONS (4)
  - Haematochezia [None]
  - Haemorrhoids [None]
  - Colonoscopy abnormal [None]
  - Metastatic neoplasm [None]

NARRATIVE: CASE EVENT DATE: 20220720
